FAERS Safety Report 6740279-4 (Version None)
Quarter: 2010Q2

REPORT INFORMATION
  Report Type: 
  Country: None (occurrence: None)
  Receive Date: 20100525
  Receipt Date: 20100517
  Transmission Date: 20101027
  Serious: Yes (Life-Threatening, Hospitalization)
  Sender: FDA-Public Use
  Company Number: FR-MERCK-1005FRA00072

PATIENT
  Age: 16 Month
  Sex: Female

DRUGS (3)
  1. SINGULAIR [Suspect]
     Indication: ASTHMA
     Route: 048
     Dates: start: 20100406, end: 20100423
  2. ALBUTEROL [Concomitant]
     Route: 055
  3. FLUTICASONE PROPIONATE [Concomitant]
     Route: 055

REACTIONS (2)
  - FEBRILE CONVULSION [None]
  - RESPIRATORY ARREST [None]
